FAERS Safety Report 7911220-3 (Version None)
Quarter: 2011Q4

REPORT INFORMATION
  Report Type: 
  Country: None (occurrence: None)
  Receive Date: 20111114
  Receipt Date: 20111108
  Transmission Date: 20120403
  Serious: Yes (Hospitalization)
  Sender: FDA-Public Use
  Company Number: US-JNJFOC-20111005316

PATIENT
  Sex: Male
  Weight: 95.26 kg

DRUGS (1)
  1. NUCYNTA [Suspect]
     Indication: PROCEDURAL PAIN
     Dosage: ONCE EVERY 6 HOURS PRN (ONLY 15O MG TABLET TAKEN)
     Route: 048
     Dates: start: 20110615

REACTIONS (6)
  - BALANCE DISORDER [None]
  - AGGRESSION [None]
  - SEROTONIN SYNDROME [None]
  - DISORIENTATION [None]
  - DYSARTHRIA [None]
  - AKATHISIA [None]
